FAERS Safety Report 4628325-5 (Version None)
Quarter: 2005Q2

REPORT INFORMATION
  Report Type: 
  Country: None (occurrence: None)
  Receive Date: 20050401
  Receipt Date: 20050321
  Transmission Date: 20051028
  Serious: Yes (Life-Threatening)
  Sender: FDA-Public Use
  Company Number: APP200500147

PATIENT
  Age: 39 Year
  Sex: Male

DRUGS (1)
  1. AMIODARONE HYDROCHLORIDE [Suspect]
     Indication: CARDIOVERSION
     Dosage: 150 MG (150 MG), INJECTION
     Dates: start: 20050308, end: 20050308

REACTIONS (2)
  - ANAPHYLACTIC REACTION [None]
  - HEART RATE INCREASED [None]
